FAERS Safety Report 6910332-0 (Version None)
Quarter: 2010Q3

REPORT INFORMATION
  Report Type: 
  Country: None (occurrence: None)
  Receive Date: 20100806
  Receipt Date: 20100727
  Transmission Date: 20110219
  Serious: Yes (Death, Other)
  Sender: FDA-Public Use
  Company Number: US-PFIZER INC-2004106702

PATIENT
  Sex: Male
  Weight: 74.4 kg

DRUGS (20)
  1. NEURONTIN [Suspect]
  2. ACETAMINOPHEN [Suspect]
  3. HYDROCODONE [Suspect]
     Dates: start: 20000601
  4. ULTRAM [Suspect]
     Dosage: DAILY
  5. MEPROBAMATE [Suspect]
  6. CARISOPRODOL [Suspect]
     Dates: start: 20000720
  7. ETHANOL [Concomitant]
  8. OXYCODONE [Concomitant]
  9. PROMETHAZINE [Concomitant]
  10. SKELAXIN [Concomitant]
     Dates: start: 20001201
  11. CATAFLAM [Concomitant]
  12. DARVOCET [Concomitant]
     Dates: start: 20001213
  13. VIOXX [Concomitant]
     Dates: start: 20010101
  14. TETRACYCLINE [Concomitant]
     Dates: start: 20000101
  15. ZOVIRAX [Concomitant]
  16. BACLOFEN [Concomitant]
  17. ZANAFLEX [Concomitant]
  18. VIAGRA [Concomitant]
     Indication: ERECTILE DYSFUNCTION
  19. LORCET-HD [Concomitant]
     Dates: start: 20010101
  20. IBUPROFEN [Concomitant]

REACTIONS (4)
  - COMPLETED SUICIDE [None]
  - DEPRESSION [None]
  - DRUG INEFFECTIVE [None]
  - MULTIPLE DRUG OVERDOSE INTENTIONAL [None]
